FAERS Safety Report 9608402 (Version 3)
Quarter: 2014Q3

REPORT INFORMATION
  Report Type: Spontaneous
  Country: FR (occurrence: FR)
  Receive Date: 20131009
  Receipt Date: 20140912
  Transmission Date: 20150326
  Serious: Yes (Hospitalization, Other)
  Sender: FDA-Public Use
  Company Number: FR-ASTRAZENECA-2013SE73520

PATIENT
  Age: 59 Year
  Sex: Male

DRUGS (7)
  1. RHINOCORT [Suspect]
     Active Substance: BUDESONIDE
     Indication: RHINITIS
     Route: 045
     Dates: start: 20130708, end: 20140710
  2. CORTANCYL [Suspect]
     Active Substance: PREDNISONE
     Indication: SCLERODERMA
     Dosage: DOSE RAPIDLY DECREASED TO 12.5 MG
     Route: 048
     Dates: start: 201304, end: 201307
  3. CACIT D3 [Concomitant]
     Active Substance: CALCIUM\CHOLECALCIFEROL
     Route: 048
  4. PARACETAMOL [Concomitant]
     Active Substance: ACETAMINOPHEN
     Dates: start: 20130708
  5. METHOTREXATE [Suspect]
     Active Substance: METHOTREXATE
     Indication: SCLERODERMA
     Route: 058
     Dates: start: 201304, end: 201307
  6. BILASKA [Suspect]
     Active Substance: BILASTINE
     Indication: RHINITIS
     Route: 048
     Dates: start: 20130708, end: 20130710
  7. TRACLEER [Concomitant]
     Active Substance: BOSENTAN\BOSENTAN MONOHYDRATE
     Indication: SCLERODERMA
     Dates: start: 201304

REACTIONS (7)
  - Rhinitis [Unknown]
  - Acute pulmonary oedema [Unknown]
  - Scleroderma renal crisis [Recovered/Resolved with Sequelae]
  - Orthopnoea [Unknown]
  - Dyspnoea [Unknown]
  - Renal failure acute [Recovered/Resolved with Sequelae]
  - Headache [Unknown]

NARRATIVE: CASE EVENT DATE: 20130708
